FAERS Safety Report 5660793-2 (Version None)
Quarter: 2008Q1

REPORT INFORMATION
  Report Type: 
  Country: None (occurrence: None)
  Receive Date: 20080311
  Receipt Date: 20080227
  Transmission Date: 20080703
  Serious: Yes (Other)
  Sender: FDA-Public Use
  Company Number: US-BAYER-200812028NA

PATIENT
  Age: 46 Year
  Sex: Female
  Weight: 102 kg

DRUGS (6)
  1. AVELOX [Suspect]
     Indication: SINUSITIS
     Dosage: TOTAL DAILY DOSE: 400 MG  UNIT DOSE: 400 MG
     Route: 048
     Dates: start: 20080101, end: 20080101
  2. SINGULAIR [Concomitant]
  3. PREVACID [Concomitant]
  4. LEXAPRO [Concomitant]
  5. ALLEGRA [Concomitant]
  6. LISINOPRIL [Concomitant]

REACTIONS (4)
  - ANAPHYLACTIC REACTION [None]
  - DYSPNOEA [None]
  - SWELLING [None]
  - URTICARIA [None]
